FAERS Safety Report 8504305-4 (Version None)
Quarter: 2012Q3

REPORT INFORMATION
  Report Type: 
  Country: None (occurrence: None)
  Receive Date: 20120711
  Receipt Date: 20120629
  Transmission Date: 20120928
  Serious: No
  Sender: FDA-Public Use
  Company Number: US-ASTRAZENECA-2012SE44923

PATIENT
  Age: 81 Year
  Sex: Female

DRUGS (1)
  1. OMEPRAZOLE [Suspect]
     Route: 048

REACTIONS (5)
  - ADVERSE DRUG REACTION [None]
  - GASTRIC DISORDER [None]
  - MALAISE [None]
  - ADVERSE EVENT [None]
  - INTENTIONAL DRUG MISUSE [None]
